FAERS Safety Report 5878150-2 (Version None)
Quarter: 2008Q3

REPORT INFORMATION
  Report Type: 
  Country: None (occurrence: None)
  Receive Date: 20080910
  Receipt Date: 20080910
  Transmission Date: 20090109
  Serious: No
  Sender: FDA-Public Use
  Company Number: None

PATIENT
  Age: 72 Year
  Sex: Female
  Weight: 54.5 kg

DRUGS (1)
  1. ONDANSETRON 40MG/20ML [Suspect]
     Indication: ANTIEMETIC SUPPORTIVE CARE
     Dosage: 8 MG 1 X @ 0915
     Dates: start: 20080908

REACTIONS (2)
  - HYPOTENSION [None]
  - TACHYCARDIA [None]
